FAERS Safety Report 17393453 (Version 1)
Quarter: 2020Q1

REPORT INFORMATION
  Report Type: Spontaneous
  Country: US (occurrence: US)
  Receive Date: 20200208
  Receipt Date: 20200208
  Transmission Date: 20200409
  Serious: No
  Sender: FDA-Public Use
  Company Number: US-TEVA-2020-US-1181575

PATIENT
  Age: 72 Year
  Sex: Male
  Weight: 147.39 kg

DRUGS (15)
  1. METFORMIN [Concomitant]
     Active Substance: METFORMIN HYDROCHLORIDE
  2. METHOTREXATE. [Concomitant]
     Active Substance: METHOTREXATE
  3. RAMIPRIL. [Concomitant]
     Active Substance: RAMIPRIL
  4. HUMALOG [Concomitant]
     Active Substance: INSULIN LISPRO
  5. FOLIC ACID. [Concomitant]
     Active Substance: FOLIC ACID
  6. FENOFIBRATE. [Concomitant]
     Active Substance: FENOFIBRATE
  7. DICLOFENAC [Concomitant]
     Active Substance: DICLOFENAC
  8. MULTIVITAMINS, PLAIN [Concomitant]
     Active Substance: VITAMINS
  9. FEXOFENADINE [Suspect]
     Active Substance: FEXOFENADINE HYDROCHLORIDE
     Indication: HYPERSENSITIVITY
     Dosage: 180 MILLIGRAM DAILY; 571 TABLET
     Route: 048
     Dates: start: 20200110, end: 20200114
  10. ASPIRIN. [Concomitant]
     Active Substance: ASPIRIN
  11. MAGLOX [Concomitant]
  12. JANUVIA [Concomitant]
     Active Substance: SITAGLIPTIN PHOSPHATE
  13. TRESIBA [Concomitant]
     Active Substance: INSULIN DEGLUDEC
  14. SIMVASTATIN. [Concomitant]
     Active Substance: SIMVASTATIN
  15. ATENOLOL. [Concomitant]
     Active Substance: ATENOLOL

REACTIONS (2)
  - Heart rate increased [Recovered/Resolved]
  - Product administered to patient of inappropriate age [Unknown]

NARRATIVE: CASE EVENT DATE: 20200113
